FAERS Safety Report 4741760-X (Version None)
Quarter: 2005Q3

REPORT INFORMATION
  Report Type: 
  Country: None (occurrence: None)
  Receive Date: 20050804
  Receipt Date: 20050427
  Transmission Date: 20060218
  Serious: No
  Sender: FDA-Public Use
  Company Number: WAES 0504USA04919

PATIENT
  Age: 47 Year
  Sex: Female

DRUGS (5)
  1. EMEND [Suspect]
     Indication: PROPHYLACTIC CHEMOTHERAPY
     Dosage: SEE IMAGE
     Route: 048
     Dates: start: 20050420, end: 20050420
  2. EMEND [Suspect]
     Indication: PROPHYLACTIC CHEMOTHERAPY
     Dosage: SEE IMAGE
     Route: 048
     Dates: start: 20050421, end: 20050422
  3. ACTIVAN [Concomitant]
  4. DECADRON [Concomitant]
  5. [THERAPY UNSPECIFIED] [Concomitant]

REACTIONS (1)
  - FLUID RETENTION [None]
